FAERS Safety Report 6091966-5 (Version None)
Quarter: 2009Q1

REPORT INFORMATION
  Report Type: 
  Country: None (occurrence: None)
  Receive Date: 20090225
  Receipt Date: 20081107
  Transmission Date: 20090719
  Serious: No
  Sender: FDA-Public Use
  Company Number: A0755430A

PATIENT
  Age: 30 Year
  Sex: Female

DRUGS (3)
  1. VALTREX [Suspect]
     Route: 048
     Dates: start: 20060101, end: 20060101
  2. OCP [Concomitant]
  3. OCP [Concomitant]

REACTIONS (1)
  - RASH [None]
